FAERS Safety Report 9297136 (Version 4)
Quarter: 2013Q2

REPORT INFORMATION
  Report Type: Spontaneous
  Country: NL (occurrence: NL)
  Receive Date: 20130520
  Receipt Date: 20130524
  Transmission Date: 20140414
  Serious: Yes (Other)
  Sender: FDA-Public Use
  Company Number: NL-ROCHE-1225920

PATIENT
  Sex: Female

DRUGS (6)
  1. RITUXIMAB [Suspect]
     Indication: RHEUMATOID ARTHRITIS
     Route: 065
     Dates: start: 20111025
  2. RITUXIMAB [Suspect]
     Dosage: LAST INFUSION: 20/SEP/2012
     Route: 065
     Dates: start: 20120905
  3. MTX [Concomitant]
     Dosage: 5 MG/WEEK
     Route: 065
     Dates: start: 201108, end: 20130514
  4. FOLIC ACID [Concomitant]
     Dosage: 5 MG/WEEK
     Route: 065
     Dates: start: 201108, end: 20130514
  5. PREDNISONE [Concomitant]
     Dosage: DD
     Route: 065
  6. ARA-C [Concomitant]

REACTIONS (1)
  - B-cell lymphoma [Unknown]
